FAERS Safety Report 10524414 (Version 1)
Quarter: 2014Q4

REPORT INFORMATION
  Report Type: Spontaneous
  Country: US (occurrence: None)
  Receive Date: 20141015
  Receipt Date: 20141015
  Transmission Date: 20150528
  Serious: Yes (Other)
  Sender: FDA-Public Use
  Company Number: PR 1603-DS

PATIENT
  Age: 62 Year
  Sex: Female

DRUGS (5)
  1. IC-GREEN [Suspect]
     Active Substance: INDOCYANINE GREEN
     Indication: VITRECTOMY
     Dosage: INJECTED INTRA-OCULARLY
     Dates: start: 20140924, end: 20140924
  2. INTRAVITREAL ANTIBIOTICS [Concomitant]
  3. VANCOMYCIN [Concomitant]
     Active Substance: VANCOMYCIN
  4. CEFTAZIDIME. [Concomitant]
     Active Substance: CEFTAZIDIME
  5. OPTHALMIC TOBRAMYCIN OINTMENT [Concomitant]

REACTIONS (6)
  - Product quality issue [None]
  - Off label use [None]
  - Visual acuity reduced [None]
  - Pain [None]
  - Post procedural infection [None]
  - Staphylococcus test positive [None]

NARRATIVE: CASE EVENT DATE: 20140926
